FAERS Safety Report 8175723-1 (Version None)
Quarter: 2012Q1

REPORT INFORMATION
  Report Type: 
  Country: None (occurrence: None)
  Receive Date: 20120301
  Receipt Date: 20120227
  Transmission Date: 20120608
  Serious: Yes (Hospitalization, Other)
  Sender: FDA-Public Use
  Company Number: US-AMGEN-USASP2012012589

PATIENT
  Age: 50 Year
  Sex: Male

DRUGS (4)
  1. NPLATE [Suspect]
     Indication: IDIOPATHIC THROMBOCYTOPENIC PURPURA
     Dates: start: 20111101
  2. CELLCEPT [Concomitant]
  3. VFEND [Concomitant]
  4. PROGRAF [Concomitant]

REACTIONS (13)
  - ABDOMINAL PAIN [None]
  - EPISTAXIS [None]
  - ASTHENIA [None]
  - PLEURAL EFFUSION [None]
  - HEPATIC CIRRHOSIS [None]
  - INFLUENZA LIKE ILLNESS [None]
  - FATIGUE [None]
  - ARTHRALGIA [None]
  - PARAESTHESIA [None]
  - DIARRHOEA [None]
  - THERAPEUTIC RESPONSE DECREASED [None]
  - PAIN [None]
  - BACK PAIN [None]
